FAERS Safety Report 13118873 (Version 3)
Quarter: 2017Q1

REPORT INFORMATION
  Report Type: Spontaneous
  Country: US (occurrence: US)
  Receive Date: 20170116
  Receipt Date: 20170302
  Transmission Date: 20170428
  Serious: Yes (Death)
  Sender: FDA-Public Use
  Company Number: PHEH2017US001542

PATIENT
  Age: 50 Year
  Sex: Male

DRUGS (2)
  1. LENVATINIB [Suspect]
     Active Substance: LENVATINIB
     Indication: RENAL CELL CARCINOMA
     Dosage: 14 MG, QD
     Route: 048
     Dates: start: 20161216
  2. AFINITOR [Suspect]
     Active Substance: EVEROLIMUS
     Indication: RENAL CELL CARCINOMA
     Dosage: 5 MG, UNK
     Route: 048

REACTIONS (22)
  - Gastrointestinal motility disorder [Unknown]
  - Faeces soft [Unknown]
  - Epistaxis [Unknown]
  - Local swelling [Recovering/Resolving]
  - Oral pain [Unknown]
  - Renal cell carcinoma [Fatal]
  - Pallor [Unknown]
  - Blister infected [Recovering/Resolving]
  - Fatigue [Unknown]
  - Muscular weakness [Unknown]
  - Nasal dryness [Unknown]
  - Emotional distress [Unknown]
  - Cough [Unknown]
  - Malignant neoplasm progression [Fatal]
  - Lymphadenopathy [Unknown]
  - Back pain [Unknown]
  - Tachycardia [Unknown]
  - Anxiety [Unknown]
  - Pigmentation disorder [Unknown]
  - Oxygen saturation decreased [Unknown]
  - Dizziness [Unknown]
  - Dyspnoea [Unknown]

NARRATIVE: CASE EVENT DATE: 201609
